FAERS Safety Report 25983871 (Version 1)
Quarter: 2025Q4

REPORT INFORMATION
  Report Type: Spontaneous
  Country: US (occurrence: US)
  Receive Date: 20251031
  Receipt Date: 20251031
  Transmission Date: 20260118
  Serious: No
  Sender: ABBVIE
  Company Number: US-ABBVIE-6521987

PATIENT

DRUGS (2)
  1. BOTOX COSMETIC [Suspect]
     Active Substance: ONABOTULINUMTOXINA
     Indication: Skin wrinkling
     Dosage: TIME INTERVAL: AS NECESSARY: DOSE: 20 UNITS, BOTOX 100 UNIT TOTAL
     Route: 065
     Dates: start: 20251009, end: 20251009
  2. BOTOX COSMETIC [Suspect]
     Active Substance: ONABOTULINUMTOXINA
     Indication: Skin wrinkling
     Dosage: TIME INTERVAL: AS NECESSARY: DOSE: 5 UNITS , BOTOX 100 UNIT TOTAL
     Route: 065
     Dates: start: 20251009, end: 20251009

REACTIONS (4)
  - Laryngeal injury [Unknown]
  - Dysphonia [Unknown]
  - Aphonia [Unknown]
  - Pain [Unknown]

NARRATIVE: CASE EVENT DATE: 20251001
